FAERS Safety Report 9519111 (Version 1)
Quarter: 2013Q3

REPORT INFORMATION
  Report Type: Spontaneous
  Country: US (occurrence: None)
  Receive Date: 20130911
  Receipt Date: 20130911
  Transmission Date: 20140515
  Serious: Yes (Other)
  Sender: FDA-Public Use
  Company Number: None

PATIENT
  Age: 5 Month
  Sex: Female
  Weight: 74.84 kg

DRUGS (1)
  1. CREST PRO HEALTH MOUTHWASH 24 HOUR PROTECTION -L-22635395RD [Suspect]
     Indication: DENTAL DISORDER PROPHYLAXIS
     Dates: start: 20130904, end: 20130904

REACTIONS (2)
  - Unevaluable event [None]
  - Ageusia [None]
